FAERS Safety Report 23054766 (Version 1)
Quarter: 2023Q4

REPORT INFORMATION
  Report Type: Spontaneous
  Country: US (occurrence: US)
  Receive Date: 20231011
  Receipt Date: 20231011
  Transmission Date: 20240110
  Serious: Yes (Hospitalization)
  Sender: FDA-Public Use
  Company Number: US-MYLANLABS-2023M1106605

PATIENT
  Age: 44 Year
  Sex: Male

DRUGS (1)
  1. PREDNISONE [Suspect]
     Active Substance: PREDNISONE
     Indication: Vasculitis
     Dosage: UNK
     Route: 065

REACTIONS (6)
  - Atypical mycobacterial infection [Recovering/Resolving]
  - Disease progression [Recovering/Resolving]
  - Bronchiolitis [Recovering/Resolving]
  - Respiratory syncytial virus infection [Unknown]
  - Sepsis [Unknown]
  - Renal failure [Unknown]
